FAERS Safety Report 12088450 (Version 1)
Quarter: 2016Q1

REPORT INFORMATION
  Report Type: Spontaneous
  Country: US (occurrence: US)
  Receive Date: 20160218
  Receipt Date: 20160218
  Transmission Date: 20160526
  Serious: No
  Sender: FDA-Public Use
  Company Number: US-GLENMARK PHARMACEUTICALS INC, USA.-2015GMK020851

PATIENT
  Age: 7 Year
  Sex: Female

DRUGS (8)
  1. ALCOHOL. [Concomitant]
     Active Substance: ALCOHOL
     Indication: CHYLOTHORAX
     Dosage: UNK
  2. SIROLIMUS. [Concomitant]
     Active Substance: SIROLIMUS
     Indication: CHYLOTHORAX
     Dosage: UNK, MONTHLY
     Route: 048
  3. SULFAMETHOXAZOLE AND TRIMETHOPRIM [Suspect]
     Active Substance: SULFAMETHOXAZOLE\TRIMETHOPRIM
     Indication: ANTIBIOTIC PROPHYLAXIS
  4. DOXYCYCLINE. [Concomitant]
     Active Substance: DOXYCYCLINE
     Indication: CHYLOTHORAX
     Dosage: UNK
  5. SODIUM TETRADECYL SULFATE [Concomitant]
     Active Substance: SODIUM TETRADECYL SULFATE
     Indication: CHYLOTHORAX
     Dosage: UNK
  6. OCTREOTIDE. [Concomitant]
     Active Substance: OCTREOTIDE
     Indication: CHYLOTHORAX
     Dosage: UNK,
     Route: 042
  7. SULFAMETHOXAZOLE AND TRIMETHOPRIM [Suspect]
     Active Substance: SULFAMETHOXAZOLE\TRIMETHOPRIM
     Indication: CHYLOTHORAX
     Dosage: UNK, MONTHLY
  8. SULFAMETHOXAZOLE AND TRIMETHOPRIM [Suspect]
     Active Substance: SULFAMETHOXAZOLE\TRIMETHOPRIM
     Indication: EFFUSION

REACTIONS (2)
  - Off label use [Unknown]
  - Therapeutic response unexpected [Unknown]
